FAERS Safety Report 6882363-0 (Version None)
Quarter: 2010Q3

REPORT INFORMATION
  Report Type: 
  Country: None (occurrence: None)
  Receive Date: 20100729
  Receipt Date: 20100527
  Transmission Date: 20110219
  Serious: No
  Sender: FDA-Public Use
  Company Number: US-MYLANLABS-2010S1009700

PATIENT
  Sex: Female

DRUGS (5)
  1. LEVOTHYROXINE SODIUM [Suspect]
     Indication: HYPOTHYROIDISM
     Route: 048
     Dates: start: 20100201, end: 20100301
  2. MAXZIDE [Concomitant]
     Indication: BLOOD PRESSURE INCREASED
     Dosage: 37.5MG/25MG
  3. BIOFLAVONOID [Concomitant]
     Indication: MENIERE'S DISEASE
  4. ALEVE (CAPLET) [Concomitant]
  5. MULTI-VITAMIN [Concomitant]

REACTIONS (4)
  - BURNING SENSATION [None]
  - HYPERSENSITIVITY [None]
  - RASH ERYTHEMATOUS [None]
  - SWELLING [None]
